FAERS Safety Report 9281801 (Version 1)
Quarter: 2013Q2

REPORT INFORMATION
  Report Type: Spontaneous
  Country: US (occurrence: US)
  Receive Date: 20130510
  Receipt Date: 20130510
  Transmission Date: 20140414
  Serious: Yes (Life-Threatening, Hospitalization, Other)
  Sender: FDA-Public Use
  Company Number: US-B.I. PHARMACEUTICALS,INC./RIDGEFIELD-2013-BI-09348BP

PATIENT
  Sex: Female

DRUGS (13)
  1. PRADAXA [Suspect]
     Indication: DEEP VEIN THROMBOSIS
     Route: 048
  2. BUMEX [Concomitant]
     Indication: OEDEMA
     Route: 048
  3. CARVEDILOL [Concomitant]
     Indication: BLOOD PRESSURE
     Route: 048
  4. ISOSORBIDE MONONITRATE [Concomitant]
     Indication: ATRIAL FIBRILLATION
     Route: 048
  5. PRAVACHOL [Concomitant]
     Indication: HYPERLIPIDAEMIA
     Dosage: 40 MG
     Route: 048
  6. RAMIPRIL [Concomitant]
     Indication: HYPERTENSION
     Dosage: 5 MG
     Route: 048
  7. ASPIRIN [Concomitant]
     Indication: HYPERTENSION
     Dosage: 81 MG
     Route: 048
  8. LEVOTHYROXINE [Concomitant]
     Indication: HYPOTHYROIDISM
     Dosage: 0.025 MG
     Route: 048
  9. CLOPIDOGREL [Concomitant]
     Indication: PLATELET DISORDER
     Dosage: 75 MG
     Route: 048
  10. VIT D [Concomitant]
     Indication: SUPPLEMENTATION THERAPY
     Dosage: 1000 U
     Route: 048
  11. GLIPIZIDE [Concomitant]
     Indication: DIABETES MELLITUS
     Dosage: 150 MG
     Route: 048
  12. COLACE [Concomitant]
     Indication: CONSTIPATION
     Dosage: 200 MG
     Route: 048
  13. SENOKOT [Concomitant]
     Indication: CONSTIPATION
     Dosage: 17.2 MG
     Route: 048

REACTIONS (4)
  - Haemorrhage [Not Recovered/Not Resolved]
  - Anaemia [Not Recovered/Not Resolved]
  - Myocardial infarction [Not Recovered/Not Resolved]
  - Cardiac arrest [Not Recovered/Not Resolved]
